FAERS Safety Report 19135830 (Version 5)
Quarter: 2021Q2

REPORT INFORMATION
  Report Type: Report from Study
  Country: CZ (occurrence: CZ)
  Receive Date: 20210414
  Receipt Date: 20210521
  Transmission Date: 20210717
  Serious: Yes (Death, Life-Threatening, Hospitalization)
  Sender: FDA-Public Use
  Company Number: NVSC2021CZ078230

PATIENT
  Age: 63 Year
  Sex: Female
  Weight: 76 kg

DRUGS (45)
  1. MYCOPHENOLATE MOFETIL. [Suspect]
     Active Substance: MYCOPHENOLATE MOFETIL
     Indication: RENAL TRANSPLANT
     Dosage: 1 G, QD
     Route: 048
     Dates: start: 20190618, end: 20210202
  2. AMBROXOL [Concomitant]
     Active Substance: AMBROXOL
     Indication: COUGH
     Dosage: UNK
     Route: 065
     Dates: start: 20200421
  3. ATORVASTATINUM [Concomitant]
     Active Substance: ATORVASTATIN
     Indication: DYSLIPIDAEMIA
     Dosage: UNK
     Route: 065
     Dates: start: 20210401, end: 20210405
  4. VALGANCICLOVIRUM [Concomitant]
     Dosage: UNK
     Route: 065
     Dates: start: 20210315, end: 20210331
  5. HYDROCORTISONUM [Concomitant]
     Active Substance: HYDROCORTISONE
     Indication: PNEUMONIA
     Dosage: UNK
     Route: 065
     Dates: start: 20210402, end: 20210409
  6. FILGRASTIMUM [Concomitant]
     Indication: LEUKOPENIA
     Dosage: UNK
     Route: 065
     Dates: start: 20210313, end: 20210313
  7. PLASMALYTE [Concomitant]
     Active Substance: ELECTROLYTES NOS
     Indication: SUPPLEMENTATION THERAPY
     Dosage: UNK
     Route: 065
     Dates: start: 20210401, end: 20210401
  8. ENOXAPARIN [Concomitant]
     Active Substance: ENOXAPARIN
     Indication: THROMBOSIS PROPHYLAXIS
     Dosage: UNK
     Route: 065
     Dates: start: 20210405, end: 20210405
  9. ENOXAPARIN [Concomitant]
     Active Substance: ENOXAPARIN
     Dosage: UNK
     Route: 065
     Dates: start: 20210406, end: 20210409
  10. PREDNISONE. [Concomitant]
     Active Substance: PREDNISONE
     Dosage: UNK
     Route: 065
     Dates: start: 20210309, end: 20210321
  11. METOPROLOL. [Concomitant]
     Active Substance: METOPROLOL
     Indication: HYPERTENSION
     Dosage: UNK
     Route: 065
     Dates: start: 20190625, end: 20210404
  12. HYDROCORTISONUM [Concomitant]
     Active Substance: HYDROCORTISONE
     Indication: PROPHYLAXIS AGAINST TRANSPLANT REJECTION
     Dosage: UNK
     Route: 065
     Dates: start: 20210401, end: 20210401
  13. FILGRASTIMUM [Concomitant]
     Indication: PNEUMONIA
     Dosage: UNK
     Route: 065
     Dates: start: 20210401, end: 20210401
  14. AMLODIPINUM [Concomitant]
     Dosage: UNK
     Route: 065
     Dates: start: 20210403, end: 20210404
  15. AMLODIPINUM [Concomitant]
     Dosage: UNK
     Route: 065
     Dates: start: 20210309, end: 20210313
  16. LINAGLIPTIN [Concomitant]
     Active Substance: LINAGLIPTIN
     Indication: NEW ONSET DIABETES AFTER TRANSPLANTATION
     Dosage: UNK
     Route: 065
     Dates: start: 20201201, end: 20210409
  17. PYRIDOXINUM [Concomitant]
     Indication: VITAMIN SUPPLEMENTATION
     Dosage: UNK
     Route: 065
     Dates: start: 20210309, end: 20210331
  18. CEFUROXIMUM [Concomitant]
     Indication: LEUKOCYTURIA
     Dosage: UNK
     Route: 065
     Dates: start: 20210313, end: 20210320
  19. METAMIZOLUM [Concomitant]
     Dosage: UNK
     Route: 065
     Dates: start: 20210403, end: 20210403
  20. ESOMEPRAZOLUM [Concomitant]
     Indication: PROPHYLAXIS AGAINST GASTROINTESTINAL ULCER
     Dosage: UNK
     Route: 065
     Dates: start: 20200322, end: 20210409
  21. TELMISARTANUM [Concomitant]
     Indication: HYPERTENSION
     Dosage: UNK
     Route: 065
     Dates: start: 20200716, end: 20210409
  22. FLUCONAZOLUM [Concomitant]
     Indication: FUNGAL INFECTION
     Dosage: UNK
     Route: 065
     Dates: start: 20210401, end: 20210401
  23. PANTOPRAZOLUM [Concomitant]
     Active Substance: PANTOPRAZOLE
     Indication: PROPHYLAXIS AGAINST GASTROINTESTINAL ULCER
     Dosage: UNK
     Route: 065
     Dates: start: 20190621, end: 20210321
  24. ACIDUM FOLICUM [Concomitant]
     Active Substance: FOLIC ACID
     Indication: VITAMIN SUPPLEMENTATION
     Dosage: UNK
     Route: 065
     Dates: start: 20210309, end: 20210331
  25. FLUCONAZOLUM [Concomitant]
     Indication: PNEUMONIA
     Dosage: UNK
     Route: 065
     Dates: start: 20210315, end: 20210325
  26. SPIRONOLACTONUM [Concomitant]
     Indication: OEDEMA
     Dosage: UNK
     Route: 065
     Dates: start: 20200421
  27. METAMIZOLUM [Concomitant]
     Indication: PROPHYLAXIS
     Dosage: UNK
     Route: 065
     Dates: start: 20210402, end: 20210402
  28. ATORVASTATINUM [Concomitant]
     Active Substance: ATORVASTATIN
     Indication: HYPERLIPIDAEMIA
     Dosage: UNK
     Route: 065
     Dates: start: 20200602, end: 20210331
  29. SALBUTAMOLUM [Concomitant]
     Active Substance: ALBUTEROL
     Indication: COUGH
     Dosage: UNK
     Route: 065
     Dates: start: 20200327
  30. BUDESONIDUM [Concomitant]
     Active Substance: BUDESONIDE
     Indication: COUGH
     Dosage: UNK
     Route: 065
     Dates: start: 20200310
  31. EZETIMIBUM [Concomitant]
     Indication: DYSLIPIDAEMIA
     Dosage: UNK
     Route: 065
     Dates: start: 20210212, end: 20210331
  32. ISCALIMAB [Suspect]
     Active Substance: ISCALIMAB
     Indication: RENAL TRANSPLANT
     Dosage: 13.2 ML, OTHER
     Route: 042
     Dates: start: 20190618, end: 20210216
  33. PREDNISONE. [Concomitant]
     Active Substance: PREDNISONE
     Dosage: UNK
     Route: 065
     Dates: start: 20210322, end: 20210401
  34. FILGRASTIMUM [Concomitant]
     Indication: NEUTROPENIA
     Dosage: UNK
     Route: 065
     Dates: start: 20210402, end: 20210404
  35. KALII CHLORIDUM [Concomitant]
     Indication: PROPHYLAXIS
     Dosage: UNK
     Route: 065
     Dates: start: 20210405, end: 20210406
  36. AMLODIPINUM [Concomitant]
     Indication: HYPERTENSION
     Dosage: UNK
     Route: 065
     Dates: start: 20200603, end: 20210331
  37. VALGANCICLOVIRUM [Concomitant]
     Indication: URINARY TRACT INFECTION
     Dosage: UNK
     Route: 065
     Dates: start: 20210212, end: 20210312
  38. VALGANCICLOVIRUM [Concomitant]
     Indication: CYTOMEGALOVIRUS INFECTION
     Dosage: UNK
     Route: 065
     Dates: start: 20210313, end: 20210314
  39. PREDNISONE. [Concomitant]
     Active Substance: PREDNISONE
     Indication: PROPHYLAXIS AGAINST TRANSPLANT REJECTION
     Dosage: 20 MG, QD
     Route: 065
     Dates: start: 20210202
  40. METOPROLOL. [Concomitant]
     Active Substance: METOPROLOL
     Dosage: UNK
     Route: 065
     Dates: start: 20210210, end: 20210402
  41. METOPROLOL. [Concomitant]
     Active Substance: METOPROLOL
     Dosage: UNK
     Route: 065
     Dates: start: 20210403, end: 20210427
  42. CIPROFLOXACINUM [Concomitant]
     Active Substance: CIPROFLOXACIN
     Indication: PROPHYLAXIS
     Dosage: UNK
     Route: 065
     Dates: start: 20210309, end: 20210316
  43. INSULINUM HUMANUM [Concomitant]
     Indication: NEW ONSET DIABETES AFTER TRANSPLANTATION
     Dosage: UNK
     Route: 065
     Dates: start: 20210401
  44. METAMIZOLUM [Concomitant]
     Dosage: UNK
     Route: 065
     Dates: start: 20210404, end: 20210404
  45. GANCICLOVIR. [Concomitant]
     Active Substance: GANCICLOVIR
     Indication: CYTOMEGALOVIRUS INFECTION
     Dosage: UNK
     Route: 065
     Dates: start: 20210424

REACTIONS (1)
  - Pneumonia [Fatal]

NARRATIVE: CASE EVENT DATE: 20210401
